FAERS Safety Report 17914852 (Version 2)
Quarter: 2020Q4

REPORT INFORMATION
  Report Type: Spontaneous
  Country: US (occurrence: US)
  Receive Date: 20200618
  Receipt Date: 20201112
  Transmission Date: 20210113
  Serious: Yes (Hospitalization)
  Sender: FDA-Public Use
  Company Number: US-TAKEDA-2020TUS026864

PATIENT
  Age: 78 Year
  Sex: Male
  Weight: 73 kg

DRUGS (6)
  1. ICLUSIG [Suspect]
     Active Substance: PONATINIB
     Dosage: UNK UNK, QD
     Route: 048
  2. ENALPRIN [Concomitant]
     Indication: BLOOD PRESSURE MEASUREMENT
     Dosage: UNK
     Route: 065
  3. TEMAZEPAM. [Concomitant]
     Active Substance: TEMAZEPAM
     Dosage: UNK
     Route: 065
  4. GABAPENTIN. [Concomitant]
     Active Substance: GABAPENTIN
     Dosage: UNK
     Route: 065
  5. BABY ASPIRIN [Concomitant]
     Active Substance: ASPIRIN
     Dosage: UNK
     Route: 065
  6. ICLUSIG [Suspect]
     Active Substance: PONATINIB
     Indication: LEUKAEMIA
     Dosage: UNK
     Route: 048
     Dates: end: 20200614

REACTIONS (3)
  - Product dose omission issue [Unknown]
  - Thyroid hormones increased [Unknown]
  - Hepatic enzyme increased [Unknown]

NARRATIVE: CASE EVENT DATE: 20200614
